FAERS Safety Report 8146067-9 (Version None)
Quarter: 2012Q1

REPORT INFORMATION
  Report Type: 
  Country: None (occurrence: None)
  Receive Date: 20120217
  Receipt Date: 20120203
  Transmission Date: 20120608
  Serious: Yes (Other)
  Sender: FDA-Public Use
  Company Number: DK-WATSON-2012-02600

PATIENT
  Age: 27 Year
  Sex: Female

DRUGS (4)
  1. CITALOPRAM HYDROBROMIDE [Suspect]
     Indication: POST-TRAUMATIC STRESS DISORDER
     Dosage: 20 MG DAILY
     Route: 048
  2. ESCITALOPRAM [Suspect]
     Indication: POST-TRAUMATIC STRESS DISORDER
  3. RISPERIDONE [Suspect]
     Indication: POST-TRAUMATIC STRESS DISORDER
     Dosage: 4 MG DAILY
     Route: 048
  4. ARIPIPRAZOLE [Suspect]
     Indication: POST-TRAUMATIC STRESS DISORDER

REACTIONS (4)
  - MORBID THOUGHTS [None]
  - MATERNAL EXPOSURE DURING PREGNANCY [None]
  - PSYCHOTIC DISORDER [None]
  - DEPRESSION [None]
